FAERS Safety Report 20336458 (Version 2)
Quarter: 2022Q1

REPORT INFORMATION
  Report Type: Spontaneous
  Country: CN (occurrence: CN)
  Receive Date: 20220114
  Receipt Date: 20220125
  Transmission Date: 20220424
  Serious: Yes (Other)
  Sender: FDA-Public Use
  Company Number: CN-SA-2022SA011180

PATIENT
  Age: 65 Year
  Sex: Female

DRUGS (5)
  1. OXALIPLATIN [Suspect]
     Active Substance: OXALIPLATIN
     Indication: Adenocarcinoma gastric
     Dosage: UNK, SIX COURSES
  2. CAPECITABINE [Suspect]
     Active Substance: CAPECITABINE
     Indication: Adenocarcinoma gastric
     Dosage: UNK, SIX COURSES
  3. CAPECITABINE [Suspect]
     Active Substance: CAPECITABINE
     Dosage: MAINTENANCE THERAPY
     Dates: start: 2020
  4. CAMRELIZUMAB [Suspect]
     Active Substance: CAMRELIZUMAB
     Indication: Metastases to peritoneum
     Dosage: UNK, SIX COURSES
  5. CAMRELIZUMAB [Suspect]
     Active Substance: CAMRELIZUMAB
     Dosage: MAINTENANCE THERAPY
     Dates: start: 2020

REACTIONS (4)
  - Bone marrow failure [Unknown]
  - Haemangioma [Unknown]
  - Fatigue [Unknown]
  - Vomiting [Unknown]
